FAERS Safety Report 7243021-6 (Version None)
Quarter: 2011Q1

REPORT INFORMATION
  Report Type: 
  Country: None (occurrence: None)
  Receive Date: 20110125
  Receipt Date: 20100930
  Transmission Date: 20110831
  Serious: No
  Sender: FDA-Public Use
  Company Number: US-AMGEN-KDL442533

PATIENT
  Age: 79 Year
  Sex: Female

DRUGS (5)
  1. UNSPECIFIED DIURETIC [Concomitant]
  2. OXYGEN [Concomitant]
  3. VERAPAMIL [Concomitant]
     Dosage: UNK UNK, UNK
  4. UNSPECIFIED ANTINEOPLASTIC AGENT [Concomitant]
     Dosage: UNK UNK, UNK
     Route: 048
  5. PROLIA [Suspect]
     Indication: OSTEOPOROSIS POSTMENOPAUSAL
     Dosage: 60 MG, Q6MO
     Dates: start: 20100920

REACTIONS (3)
  - HEADACHE [None]
  - CHEST PAIN [None]
  - BACK PAIN [None]
